FAERS Safety Report 16127229 (Version 1)
Quarter: 2019Q2

REPORT INFORMATION
  Report Type: Spontaneous
  Country: US (occurrence: US)
  Receive Date: 20190327
  Receipt Date: 20190327
  Transmission Date: 20190711
  Serious: No
  Sender: FDA-Public Use
  Company Number: None

PATIENT
  Age: 26 Year
  Sex: Female
  Weight: 69.75 kg

DRUGS (1)
  1. MICONAZOLE. [Suspect]
     Active Substance: MICONAZOLE
     Indication: VULVOVAGINAL MYCOTIC INFECTION
     Dosage: ?          QUANTITY:1 OVULE/CREAM;OTHER FREQUENCY:ONE TIME ONLY;?
     Route: 067
     Dates: start: 20190326, end: 20190326

REACTIONS (2)
  - Vulvovaginal discomfort [None]
  - Pruritus [None]

NARRATIVE: CASE EVENT DATE: 20190326
